FAERS Safety Report 4393927-0 (Version None)
Quarter: 2004Q3

REPORT INFORMATION
  Report Type: 
  Country: None (occurrence: None)
  Receive Date: 20040702
  Receipt Date: 20040621
  Transmission Date: 20050211
  Serious: Yes (Other)
  Sender: FDA-Public Use
  Company Number: 2004041828

PATIENT
  Age: 36 Year
  Sex: Female

DRUGS (3)
  1. VIRACEPT [Suspect]
     Indication: HIV TEST POSITIVE
     Dosage: 2500 MG (1 D), ORAL
     Route: 048
     Dates: start: 20040528
  2. ZIDOVUDINE W/LAMIVUDINE (LAMIVUDINE, ZIDOVUDINE) [Suspect]
     Indication: HIV TEST POSITIVE
     Dosage: (2 IN 1 D), ORAL
     Route: 048
     Dates: start: 20020524
  3. EFAVIRENZ (EFAVIRENZ) [Suspect]
     Indication: HIV TEST POSITIVE
     Dosage: 600 MG (1 IN 1 D), ORAL
     Route: 048
     Dates: start: 20020524, end: 20040518

REACTIONS (4)
  - ABORTION SPONTANEOUS [None]
  - COMPLICATIONS OF MATERNAL EXPOSURE TO THERAPEUTIC DRUGS [None]
  - MATERNAL DRUGS AFFECTING FOETUS [None]
  - PREGNANCY [None]
